FAERS Safety Report 25227570 (Version 3)
Quarter: 2025Q2

REPORT INFORMATION
  Report Type: Spontaneous
  Country: JP (occurrence: JP)
  Receive Date: 20250422
  Receipt Date: 20250511
  Transmission Date: 20250716
  Serious: Yes (Other)
  Sender: JOHNSON AND JOHNSON
  Company Number: JP-JNJFOC-20250246187

PATIENT
  Sex: Male

DRUGS (1)
  1. RYBREVANT [Suspect]
     Active Substance: AMIVANTAMAB-VMJW
     Indication: Product used for unknown indication
     Route: 041
     Dates: start: 20250201, end: 2025

REACTIONS (4)
  - Neutropenia [Unknown]
  - Disease progression [Unknown]
  - Peripheral vein thrombosis [Unknown]
  - Off label use [Unknown]

NARRATIVE: CASE EVENT DATE: 20250101
